FAERS Safety Report 7511674-0 (Version None)
Quarter: 2011Q2

REPORT INFORMATION
  Report Type: 
  Country: None (occurrence: None)
  Receive Date: 20110531
  Receipt Date: 20110518
  Transmission Date: 20111010
  Serious: Yes (Hospitalization)
  Sender: FDA-Public Use
  Company Number: US-ASTRAZENECA-2011SE25013

PATIENT
  Age: 28193 Day
  Sex: Male

DRUGS (11)
  1. ASPIRIN [Concomitant]
     Indication: PROPHYLAXIS
     Route: 048
  2. LISINOPRIL [Suspect]
     Indication: HYPERTENSION
     Route: 048
     Dates: start: 20090415
  3. ROSUVASTATIN [Suspect]
     Indication: CORONARY ARTERY DISEASE
     Dosage: DAILY
     Route: 048
     Dates: start: 20090424
  4. DESONIDE [Concomitant]
     Indication: INFLAMMATION
     Route: 003
  5. ISOSORBIDE DINITRATE [Suspect]
     Indication: HYPERTENSION
     Route: 065
  6. KETOCONAZOLE [Concomitant]
     Indication: DERMATITIS
     Route: 003
  7. OMEPRAZOLE [Concomitant]
     Indication: GASTROOESOPHAGEAL REFLUX DISEASE
     Route: 048
     Dates: start: 20090209
  8. METOPROLOL TARTRATE [Suspect]
     Indication: HYPERTENSION
     Route: 048
  9. AMLODIPINE [Concomitant]
     Indication: HYPERTENSION
     Route: 048
     Dates: start: 20090320
  10. CLOPIDOGREL [Concomitant]
     Indication: CARDIOVASCULAR EVENT PROPHYLAXIS
     Route: 048
     Dates: start: 20090415
  11. NITROGLYCERIN [Concomitant]
     Indication: PAIN PROPHYLAXIS
     Route: 060

REACTIONS (1)
  - SYNCOPE [None]
